FAERS Safety Report 6697133-6 (Version None)
Quarter: 2010Q2

REPORT INFORMATION
  Report Type: 
  Country: None (occurrence: None)
  Receive Date: 20100422
  Receipt Date: 20100408
  Transmission Date: 20101027
  Serious: Yes (Other)
  Sender: FDA-Public Use
  Company Number: JPI-P-010266

PATIENT
  Age: 62 Year
  Sex: Male
  Weight: 116.5744 kg

DRUGS (5)
  1. XYREM [Suspect]
     Indication: NARCOLEPSY
     Dosage: SEE IMAGE, ORAL
     Route: 048
     Dates: start: 20081206, end: 20081212
  2. XYREM [Suspect]
     Indication: NARCOLEPSY
     Dosage: SEE IMAGE, ORAL
     Route: 048
     Dates: start: 20081213, end: 20081219
  3. XYREM [Suspect]
     Indication: NARCOLEPSY
     Dosage: SEE IMAGE, ORAL
     Route: 048
     Dates: start: 20081220, end: 20081226
  4. XYREM [Suspect]
     Indication: NARCOLEPSY
     Dosage: SEE IMAGE, ORAL
     Route: 048
     Dates: start: 20081227
  5. UNSPECIFIED MEDICATION [Concomitant]

REACTIONS (3)
  - FALL [None]
  - MUSCLE RUPTURE [None]
  - POST PROCEDURAL INFECTION [None]
